FAERS Safety Report 7188431-0 (Version None)
Quarter: 2010Q4

REPORT INFORMATION
  Report Type: 
  Country: None (occurrence: None)
  Receive Date: 20101222
  Receipt Date: 20100720
  Transmission Date: 20110411
  Serious: No
  Sender: FDA-Public Use
  Company Number: US-AMGEN-KDL425771

PATIENT

DRUGS (17)
  1. ENBREL [Suspect]
     Indication: PRODUCT USED FOR UNKNOWN INDICATION
     Dosage: 50 MG, QWK
     Route: 058
  2. PENTAZOCINE LACTATE [Concomitant]
     Dosage: UNK UNK, UNK
  3. NALOXONE HYDROCHLORIDE [Concomitant]
     Dosage: UNK UNK, UNK
  4. OLOPATADINE HYDROCHLORIDE [Concomitant]
     Dosage: .2 %, UNK
  5. LEVOTHYROXINE SODIUM [Concomitant]
     Dosage: 50 A?G, UNK
  6. NASACORT AQ [Concomitant]
  7. SUCRALFATE [Concomitant]
     Dosage: 1 G, UNK
  8. BETHANECHOL [Concomitant]
     Dosage: 25 MG, UNK
  9. NITROFURANTOIN (MONOHYDRATE/MACROCRYSTALS) [Concomitant]
     Dosage: 100 MG, UNK
  10. RANITIDINE HYDROCHLORIDE [Concomitant]
     Dosage: 150 MG, UNK
  11. OMEPRAZOLE [Concomitant]
     Dosage: 10 MG, UNK
  12. TOPROL-XL [Concomitant]
     Dosage: 100 MG, UNK
  13. MILNACIPRAN [Concomitant]
     Dosage: 12.5 MG, UNK
  14. FLAX SEED OIL [Concomitant]
  15. COENZYME Q10 [Concomitant]
     Dosage: 100 MG, UNK
  16. ACETAMINOPHEN [Concomitant]
     Dosage: 500 MG, UNK
  17. GUAIFENESIN [Concomitant]

REACTIONS (1)
  - DRUG INEFFECTIVE [None]
